FAERS Safety Report 9220677 (Version 3)
Quarter: 2013Q4

REPORT INFORMATION
  Report Type: Report from Study
  Country: GB (occurrence: GB)
  Receive Date: 20130409
  Receipt Date: 20131021
  Transmission Date: 20140711
  Serious: Yes (Other)
  Sender: FDA-Public Use
  Company Number: GB-VERTEX PHARMACEUTICALS INC.-2013-004636

PATIENT
  Age: 48 Year
  Sex: Male

DRUGS (7)
  1. VX-950 (TELAPREVIR) [Suspect]
     Indication: HEPATITIS C
     Dosage: 750 MG, TID
     Route: 048
     Dates: start: 20130116, end: 20130410
  2. RIBAVIRIN [Concomitant]
     Indication: HEPATITIS C
     Dosage: 400 MG, BID
     Route: 065
     Dates: start: 20130116
  3. PEGASYS [Concomitant]
     Indication: HEPATITIS C
     Dosage: 180 ?G, QW
     Route: 065
     Dates: start: 20130116
  4. METHADONE [Concomitant]
     Dosage: 80 ML, QD
  5. THIAMINE [Concomitant]
  6. MIRTAZAPINE [Concomitant]
     Dosage: 30 MG, QD
  7. CIPRAMIL [Concomitant]
     Dosage: 20 MG, QD

REACTIONS (6)
  - VIIth nerve paralysis [Recovered/Resolved]
  - Anaemia [Not Recovered/Not Resolved]
  - Lethargy [Recovered/Resolved]
  - Asthenia [Recovered/Resolved]
  - Rash [Unknown]
  - Pruritus [Unknown]
